FAERS Safety Report 6164806-3 (Version None)
Quarter: 2009Q2

REPORT INFORMATION
  Report Type: 
  Country: None (occurrence: None)
  Receive Date: 20090423
  Receipt Date: 20090415
  Transmission Date: 20091009
  Serious: Yes (Hospitalization)
  Sender: FDA-Public Use
  Company Number: AU-WYE-G03511509

PATIENT
  Sex: Female

DRUGS (4)
  1. VENLAFAXINE HYDROCHLORIDE [Suspect]
     Dosage: 75MG DAILY
  2. PARLODEL [Concomitant]
  3. SOMAC [Concomitant]
     Dosage: 40MG DAILY
  4. AVAPRO [Concomitant]
     Indication: ESSENTIAL HYPERTENSION
     Dosage: 300MG DAILY

REACTIONS (5)
  - ANOREXIA [None]
  - ATAXIA [None]
  - BURNING SENSATION [None]
  - FEELING HOT [None]
  - GAIT DISTURBANCE [None]
